FAERS Safety Report 7799450-5 (Version None)
Quarter: 2011Q4

REPORT INFORMATION
  Report Type: 
  Country: None (occurrence: None)
  Receive Date: 20111004
  Receipt Date: 20110920
  Transmission Date: 20120403
  Serious: Yes (Hospitalization, Other)
  Sender: FDA-Public Use
  Company Number: CIP11000539

PATIENT
  Age: 71 Year
  Sex: Female
  Weight: 58.6 kg

DRUGS (17)
  1. AVAPRO [Concomitant]
  2. PRINIVIL /00894001/ (LISINOPRIL) [Concomitant]
  3. FOSAMAX [Suspect]
     Indication: OSTEOPOROSIS
     Dosage: 70 MG ONCE WEEKLY, ORAL
     Route: 048
     Dates: end: 20100818
  4. FOSAMAX [Suspect]
     Indication: OSTEOPOROSIS
     Dosage: 70 MG ONCE WEEKLY, ORAL
     Route: 048
     Dates: start: 20031216, end: 20060203
  5. CALAN /00014302/ (VERAPAMIL HYDROCHLORIDE) [Concomitant]
  6. BENICAR [Concomitant]
  7. NIASPAN [Concomitant]
  8. CALCIUM +VIT D (CALCIUM, COLECALCIFEROL) [Concomitant]
  9. ACTONEL [Suspect]
     Dosage: 35 MG ONCE WEEKLY, ORAL
     Route: 048
     Dates: start: 20060124, end: 20080101
  10. ZOCOR [Concomitant]
  11. HYDROCHLOROTHIAZIDE [Concomitant]
  12. TIMOPTIC [Concomitant]
  13. LUMIGAN [Concomitant]
  14. CRESTOR [Concomitant]
  15. NORVASC [Concomitant]
  16. FISH OIL (FISH OIL) [Concomitant]
  17. ASPIRIN [Concomitant]

REACTIONS (12)
  - LIMB ASYMMETRY [None]
  - ARTHRALGIA [None]
  - ARTHRITIS [None]
  - BURSITIS [None]
  - FEMUR FRACTURE [None]
  - FRACTURE DISPLACEMENT [None]
  - OEDEMA PERIPHERAL [None]
  - MUSCLE ATROPHY [None]
  - FALL [None]
  - JOINT STIFFNESS [None]
  - LIMB DEFORMITY [None]
  - GAIT DISTURBANCE [None]
